FAERS Safety Report 15169253 (Version 1)
Quarter: 2018Q3

REPORT INFORMATION
  Report Type: Spontaneous
  Country: JP (occurrence: JP)
  Receive Date: 20180720
  Receipt Date: 20180720
  Transmission Date: 20181010
  Serious: Yes (Other)
  Sender: FDA-Public Use
  Company Number: JP-ALKEM LABORATORIES LIMITED-JP-ALKEM-2018-03184

PATIENT
  Age: 70 Year
  Sex: Female

DRUGS (4)
  1. LINEZOLID. [Suspect]
     Active Substance: LINEZOLID
     Indication: STAPHYLOCOCCAL INFECTION
     Dosage: 600 TO 1200 MG/DAY
     Route: 065
     Dates: start: 2006
  2. TRIAMCINOLONE ACETONIDE. [Suspect]
     Active Substance: TRIAMCINOLONE ACETONIDE
     Dosage: UNK, SUB?TENON^S CAPSULE INJECTION, RIGHT EYE
     Route: 065
     Dates: start: 20080319
  3. LINEZOLID. [Suspect]
     Active Substance: LINEZOLID
     Indication: OSTEOMYELITIS
  4. TRIAMCINOLONE ACETONIDE. [Suspect]
     Active Substance: TRIAMCINOLONE ACETONIDE
     Indication: PRODUCT USED FOR UNKNOWN INDICATION
     Dosage: UNK, SUB?TENON^S CAPSULE INJECTION, LEFT EYE
     Route: 065
     Dates: start: 20080312

REACTIONS (2)
  - Visual acuity reduced [Recovered/Resolved]
  - Optic neuropathy [Recovered/Resolved]
